FAERS Safety Report 10037205 (Version 2)
Quarter: 2014Q1

REPORT INFORMATION
  Report Type: Spontaneous
  Country: US (occurrence: US)
  Receive Date: 20140326
  Receipt Date: 20140326
  Transmission Date: 20141002
  Serious: No
  Sender: FDA-Public Use
  Company Number: US-SHIRE-US201400057

PATIENT
  Age: 5 Year
  Sex: Male

DRUGS (3)
  1. VYVANSE [Suspect]
     Indication: AUTISM
     Dosage: 20 MG, 1X/DAY:QD
     Route: 048
     Dates: start: 20130303, end: 201305
  2. VYVANSE [Suspect]
     Indication: ATTENTION DEFICIT/HYPERACTIVITY DISORDER
     Dosage: 20 MG, 1X/DAY:QD
     Route: 048
     Dates: start: 201311, end: 20140211
  3. MELATONIN [Concomitant]
     Indication: SLEEP DISORDER
     Dosage: 5 MG, 1X/DAY:QD (HS)
     Route: 060

REACTIONS (3)
  - Social avoidant behaviour [Recovered/Resolved]
  - Off label use [Recovered/Resolved]
  - Product quality issue [Unknown]
